FAERS Safety Report 25661564 (Version 1)
Quarter: 2025Q3

REPORT INFORMATION
  Report Type: Spontaneous
  Country: US (occurrence: US)
  Receive Date: 20250808
  Receipt Date: 20250808
  Transmission Date: 20251020
  Serious: Yes (Other)
  Sender: AMGEN
  Company Number: US-AMGEN-USASP2025155883

PATIENT

DRUGS (4)
  1. PREDNISONE [Suspect]
     Active Substance: PREDNISONE
     Indication: Hodgkin^s disease
     Route: 065
  2. MECHLORETHAMINE [Concomitant]
     Active Substance: MECHLORETHAMINE
  3. VINCRISTINE [Concomitant]
     Active Substance: VINCRISTINE
  4. PROCARBAZINE [Concomitant]
     Active Substance: PROCARBAZINE

REACTIONS (11)
  - Hypothyroidism [Unknown]
  - Thyroid cancer [Unknown]
  - Skin cancer [Unknown]
  - Breast cancer [Unknown]
  - Neoplasm malignant [Unknown]
  - Osteonecrosis [Unknown]
  - Cardiac disorder [Unknown]
  - Lung disorder [Unknown]
  - Thyroid disorder [Unknown]
  - Bone disorder [Unknown]
  - Osteoporosis [Unknown]
